FAERS Safety Report 9339487 (Version 2)
Quarter: 2013Q3

REPORT INFORMATION
  Report Type: Report from Study
  Country: KR (occurrence: KR)
  Receive Date: 20130610
  Receipt Date: 20130701
  Transmission Date: 20140515
  Serious: Yes (Hospitalization)
  Sender: FDA-Public Use
  Company Number: KR-ELI_LILLY_AND_COMPANY-KR201305009910

PATIENT
  Age: 65 Year
  Sex: Female

DRUGS (1)
  1. LISPRO [Suspect]
     Indication: TYPE 2 DIABETES MELLITUS
     Dosage: UNK, QD
     Route: 058
     Dates: start: 20130521

REACTIONS (5)
  - Joint dislocation [Unknown]
  - Ligament rupture [Unknown]
  - Fall [Unknown]
  - Blood glucose increased [Recovered/Resolved]
  - Dizziness [Recovered/Resolved]
